FAERS Safety Report 18480147 (Version 1)
Quarter: 2020Q4

REPORT INFORMATION
  Report Type: Spontaneous
  Country: US (occurrence: US)
  Receive Date: 20201109
  Receipt Date: 20201109
  Transmission Date: 20210114
  Serious: No
  Sender: FDA-Public Use
  Company Number: None

PATIENT
  Sex: Male

DRUGS (1)
  1. OTEZLA [Suspect]
     Active Substance: APREMILAST
     Indication: PSORIASIS
     Route: 048
     Dates: start: 202002, end: 2020

REACTIONS (5)
  - Suicidal ideation [None]
  - Infrequent bowel movements [None]
  - Depression [None]
  - Therapy cessation [None]
  - Abdominal discomfort [None]
